FAERS Safety Report 23470356 (Version 1)
Quarter: 2024Q1

REPORT INFORMATION
  Report Type: Spontaneous
  Country: US (occurrence: None)
  Receive Date: 20240202
  Receipt Date: 20240202
  Transmission Date: 20240410
  Serious: No
  Sender: FDA-Public Use
  Company Number: None

PATIENT
  Age: 9 Year
  Sex: Female
  Weight: 72.57 kg

DRUGS (1)
  1. DUPIXENT [Suspect]
     Active Substance: DUPILUMAB
     Indication: Dermatitis atopic
     Dosage: OTHER FREQUENCY : EVERY2WEEKS;?
     Route: 058
     Dates: start: 20230112, end: 20240202

REACTIONS (2)
  - Increased appetite [None]
  - Mood altered [None]

NARRATIVE: CASE EVENT DATE: 20240112
